FAERS Safety Report 7126246-X (Version None)
Quarter: 2010Q4

REPORT INFORMATION
  Report Type: 
  Country: None (occurrence: None)
  Receive Date: 20101129
  Receipt Date: 20101122
  Transmission Date: 20110411
  Serious: Yes (Death, Hospitalization)
  Sender: FDA-Public Use
  Company Number: US-BRISTOL-MYERS SQUIBB COMPANY-15399447

PATIENT
  Age: 74 Year
  Sex: Female
  Weight: 58 kg

DRUGS (7)
  1. CYTOXAN [Suspect]
     Indication: BREAST CANCER
     Dates: start: 20100730, end: 20100730
  2. TAXOTERE [Suspect]
     Indication: BREAST CANCER
     Dosage: LOT NO.DOA615,EXP 042013 LOT DOA585,EXP 032013
     Route: 041
     Dates: start: 20100730, end: 20100730
  3. ADRIAMYCIN PFS [Suspect]
     Indication: BREAST CANCER
     Dates: start: 20100730, end: 20100730
  4. FOSAMAX [Concomitant]
  5. ACETYLSALICYLIC ACID [Concomitant]
  6. CALCIUM [Concomitant]
  7. MULTI-VITAMINS [Concomitant]

REACTIONS (4)
  - ENTEROCOLITIS HAEMORRHAGIC [None]
  - GASTROINTESTINAL NECROSIS [None]
  - NEUTROPENIC COLITIS [None]
  - SEPSIS [None]
